FAERS Safety Report 14577742 (Version 3)
Quarter: 2018Q1

REPORT INFORMATION
  Report Type: Spontaneous
  Country: ES (occurrence: ES)
  Receive Date: 20180227
  Receipt Date: 20180328
  Transmission Date: 20180509
  Serious: Yes (Other)
  Sender: FDA-Public Use
  Company Number: ES-ASTELLAS-2018US007881

PATIENT
  Age: 85 Year
  Sex: Male

DRUGS (11)
  1. ELIGARD [Suspect]
     Active Substance: LEUPROLIDE ACETATE
     Indication: HORMONE-REFRACTORY PROSTATE CANCER
     Dosage: 45 MG, 1 VIAL (EVERY 6 MONTHS)
     Route: 058
     Dates: start: 20140325
  2. XTANDI [Suspect]
     Active Substance: ENZALUTAMIDE
     Indication: HORMONE-REFRACTORY PROSTATE CANCER
     Route: 048
     Dates: start: 20170809, end: 20180109
  3. SITAGLIPTIN [Concomitant]
     Active Substance: SITAGLIPTIN
     Indication: PRODUCT USED FOR UNKNOWN INDICATION
     Dosage: 1 DF, TWICE DAILY (AT BREAKFAST AND DINNER)
     Route: 048
  4. DECAPEPTYL (ACETATE) [Concomitant]
     Active Substance: TRIPTORELIN ACETATE
     Indication: PRODUCT USED FOR UNKNOWN INDICATION
     Dosage: UNK UNK, UNKNOWN FREQ.
     Route: 030
     Dates: start: 201407
  5. PARACETAMOL [Concomitant]
     Active Substance: ACETAMINOPHEN
     Indication: PRODUCT USED FOR UNKNOWN INDICATION
     Route: 048
  6. METFORMIN [Concomitant]
     Active Substance: METFORMIN HYDROCHLORIDE
     Indication: PRODUCT USED FOR UNKNOWN INDICATION
     Dosage: 50/1000 MG 1 DF, TWICE DAILY (AT BREAKFAST AND DINNER)
     Route: 048
  7. ALLOPURINOL. [Concomitant]
     Active Substance: ALLOPURINOL
     Indication: PRODUCT USED FOR UNKNOWN INDICATION
     Dosage: 300 UNITS UNKNOWN 1 DF, AT BEDTIME (AT DINNER)
     Route: 048
  8. LOSARTAN. [Concomitant]
     Active Substance: LOSARTAN
     Indication: PRODUCT USED FOR UNKNOWN INDICATION
     Dosage: 50 (UNITS UNKNOWN) 1 DF, ONCE DAILY
     Route: 048
  9. SIMVASTATIN. [Concomitant]
     Active Substance: SIMVASTATIN
     Indication: PRODUCT USED FOR UNKNOWN INDICATION
     Dosage: 20 UNITS UNKNOWN 1 DF, AT BEDTIME (BEFORE SLEEPING)
     Route: 048
  10. OMEPRAZOLE. [Concomitant]
     Active Substance: OMEPRAZOLE
     Indication: PRODUCT USED FOR UNKNOWN INDICATION
     Dosage: 1 DF, TWICE DAILY (AT BREAKFAST AND DINNER)
     Route: 048
  11. PROPRANOLOL [Concomitant]
     Active Substance: PROPRANOLOL HYDROCHLORIDE
     Indication: PRODUCT USED FOR UNKNOWN INDICATION
     Dosage: 0.5 DF, ONCE DAILY (AT BREAKFAST)
     Route: 048

REACTIONS (18)
  - Neurotoxicity [Unknown]
  - Muscular weakness [Unknown]
  - Fall [Unknown]
  - Dyskinesia [Unknown]
  - Constipation [Unknown]
  - Prostatic specific antigen increased [Recovered/Resolved]
  - Lacunar infarction [Unknown]
  - Fall [Unknown]
  - Dizziness [Unknown]
  - Lymphadenopathy [Unknown]
  - Dizziness [Unknown]
  - Faecaloma [Unknown]
  - Asthenia [Recovering/Resolving]
  - General physical health deterioration [Unknown]
  - Renal failure [Unknown]
  - Bradyphrenia [Unknown]
  - Somnolence [Unknown]
  - Flatulence [Unknown]

NARRATIVE: CASE EVENT DATE: 201708
